FAERS Safety Report 22130544 (Version 2)
Quarter: 2024Q3

REPORT INFORMATION
  Report Type: Report from Study
  Country: CA (occurrence: None)
  Receive Date: 20230323
  Receipt Date: 20240919
  Transmission Date: 20241016
  Serious: Yes (Other)
  Sender: ORION
  Company Number: CA-PFIZER INC-202300124806

PATIENT
  Age: 52 Year
  Sex: Female

DRUGS (21)
  1. METHOTREXATE [Suspect]
     Active Substance: METHOTREXATE
     Indication: Product used for unknown indication
  2. METHOTREXATE [Suspect]
     Active Substance: METHOTREXATE
  3. ENTYVIO [Suspect]
     Active Substance: VEDOLIZUMAB
     Indication: Crohn^s disease
  4. ENTYVIO [Suspect]
     Active Substance: VEDOLIZUMAB
  5. ENTYVIO [Suspect]
     Active Substance: VEDOLIZUMAB
  6. ENTYVIO [Suspect]
     Active Substance: VEDOLIZUMAB
  7. ENTYVIO [Suspect]
     Active Substance: VEDOLIZUMAB
  8. ENTYVIO [Suspect]
     Active Substance: VEDOLIZUMAB
  9. ENTYVIO [Suspect]
     Active Substance: VEDOLIZUMAB
  10. ENTYVIO [Suspect]
     Active Substance: VEDOLIZUMAB
     Dosage: CYCLIC
  11. ENTYVIO [Suspect]
     Active Substance: VEDOLIZUMAB
     Dosage: CYCLIC
  12. ENTYVIO [Suspect]
     Active Substance: VEDOLIZUMAB
     Dosage: CYCLIC
  13. ENTYVIO [Suspect]
     Active Substance: VEDOLIZUMAB
     Dosage: CYCLIC
  14. ENTYVIO [Suspect]
     Active Substance: VEDOLIZUMAB
     Dosage: CYCLIC
  15. ENTYVIO [Suspect]
     Active Substance: VEDOLIZUMAB
     Dosage: CYCLIC
  16. ENTYVIO [Suspect]
     Active Substance: VEDOLIZUMAB
     Dosage: CYCLIC
  17. ENTYVIO [Suspect]
     Active Substance: VEDOLIZUMAB
     Dosage: CYCLIC
  18. FENTANYL [Concomitant]
     Active Substance: FENTANYL\FENTANYL CITRATE
  19. MAGALDRATE [Concomitant]
     Active Substance: MAGALDRATE
  20. THYROXINE [Concomitant]
     Active Substance: LEVOTHYROXINE
  21. ESOMEPRAZOLE MAGNESIUM [Concomitant]
     Active Substance: ESOMEPRAZOLE MAGNESIUM

REACTIONS (5)
  - Off label use [Unknown]
  - Therapeutic reaction time decreased [Not Recovered/Not Resolved]
  - Crohn^s disease [Not Recovered/Not Resolved]
  - Nausea [Not Recovered/Not Resolved]
  - Abdominal pain upper [Not Recovered/Not Resolved]
